FAERS Safety Report 18272760 (Version 1)
Quarter: 2020Q3

REPORT INFORMATION
  Report Type: Spontaneous
  Country: US (occurrence: US)
  Receive Date: 20200915
  Receipt Date: 20200915
  Transmission Date: 20201103
  Serious: No
  Sender: FDA-Public Use
  Company Number: None

PATIENT
  Sex: Male

DRUGS (1)
  1. STELARA [Suspect]
     Active Substance: USTEKINUMAB
     Indication: CROHN^S DISEASE
     Dosage: ?          OTHER DOSE:90MG/ML;OTHER FREQUENCY:EVERY 8 WEEKS;?
     Route: 058
     Dates: start: 20190708

REACTIONS (1)
  - Drug ineffective [None]
